FAERS Safety Report 7069937-1 (Version None)
Quarter: 2010Q4

REPORT INFORMATION
  Report Type: 
  Country: None (occurrence: None)
  Receive Date: 20101028
  Receipt Date: 20100826
  Transmission Date: 20110411
  Serious: No
  Sender: FDA-Public Use
  Company Number: US-WYE-H16390110

PATIENT
  Age: 69 Year
  Sex: Female
  Weight: 59.02 kg

DRUGS (8)
  1. ADVIL [Suspect]
     Indication: PAIN
     Route: 048
     Dates: start: 20100712
  2. ADVIL [Suspect]
     Indication: PAIN IN EXTREMITY
  3. VYTORIN [Concomitant]
  4. ACETYLSALICYLIC ACID [Concomitant]
  5. PRILOSEC [Concomitant]
  6. ASCORBIC ACID [Concomitant]
  7. HYZAAR [Concomitant]
  8. EVISTA [Concomitant]

REACTIONS (1)
  - DRUG EFFECT DECREASED [None]
